FAERS Safety Report 8496218-1 (Version None)
Quarter: 2012Q3

REPORT INFORMATION
  Report Type: 
  Country: None (occurrence: None)
  Receive Date: 20120709
  Receipt Date: 20120705
  Transmission Date: 20120928
  Serious: Yes (Other)
  Sender: FDA-Public Use
  Company Number: CA-BAYER-2012-067285

PATIENT
  Age: 31 Year
  Sex: Female
  Weight: 133 kg

DRUGS (1)
  1. MIRENA [Suspect]
     Dosage: UNK
     Route: 015

REACTIONS (2)
  - INFLAMMATORY BOWEL DISEASE [None]
  - ERYTHEMA NODOSUM [None]
